FAERS Safety Report 10447388 (Version 2)
Quarter: 2014Q3

REPORT INFORMATION
  Report Type: Spontaneous
  Country: US (occurrence: US)
  Receive Date: 20140911
  Receipt Date: 20140911
  Transmission Date: 20150326
  Serious: No
  Sender: FDA-Public Use
  Company Number: US-BEH-2011030227

PATIENT
  Age: 54 Year
  Sex: Male
  Weight: 96 kg

DRUGS (7)
  1. ALBUTEROL. [Concomitant]
     Active Substance: ALBUTEROL
  2. ZEMAIRA [Suspect]
     Active Substance: .ALPHA.1-PROTEINASE INHIBITOR HUMAN
     Dosage: 950 MG/VIAL;0.8 ML/KG/MIN (-/+ 10%)
     Route: 042
  3. SODIUM CHLORIDE. [Concomitant]
     Active Substance: SODIUM CHLORIDE
  4. SPIRIVA [Concomitant]
     Active Substance: TIOTROPIUM BROMIDE MONOHYDRATE
  5. EPIPEN [Concomitant]
     Active Substance: EPINEPHRINE
  6. ZEMAIRA [Suspect]
     Active Substance: .ALPHA.1-PROTEINASE INHIBITOR HUMAN
     Indication: ALPHA-1 ANTI-TRYPSIN DEFICIENCY
     Dosage: 0.08 ML/KG/MIN
     Route: 042
     Dates: start: 20111028
  7. ADVAIR HFA [Concomitant]
     Active Substance: FLUTICASONE PROPIONATE\SALMETEROL XINAFOATE

REACTIONS (6)
  - Throat tightness [Recovered/Resolved]
  - Speech disorder [Recovered/Resolved]
  - Throat tightness [Unknown]
  - Sleep disorder [Unknown]
  - Speech disorder [Unknown]
  - Lethargy [Unknown]

NARRATIVE: CASE EVENT DATE: 201110
